FAERS Safety Report 7214749-9 (Version None)
Quarter: 2011Q1

REPORT INFORMATION
  Report Type: 
  Country: None (occurrence: None)
  Receive Date: 20110107
  Receipt Date: 20100422
  Transmission Date: 20110831
  Serious: No
  Sender: FDA-Public Use
  Company Number: A0840750A

PATIENT
  Age: 55 Year
  Sex: Female

DRUGS (5)
  1. LOVAZA [Suspect]
     Dosage: 4G TWICE PER DAY
     Route: 048
     Dates: start: 20100103
  2. PRAVACHOL [Concomitant]
  3. AMITRIPTYLINE [Concomitant]
  4. PRAVASTATIN [Concomitant]
  5. ARIMIDEX [Concomitant]

REACTIONS (3)
  - DRY EYE [None]
  - HERPES ZOSTER [None]
  - HEADACHE [None]
